FAERS Safety Report 16888660 (Version 2)
Quarter: 2019Q4

REPORT INFORMATION
  Report Type: Spontaneous
  Country: US (occurrence: US)
  Receive Date: 20191007
  Receipt Date: 20191219
  Transmission Date: 20200122
  Serious: No
  Sender: FDA-Public Use
  Company Number: US-JNJFOC-20190931311

PATIENT
  Sex: Female
  Weight: 52.21 kg

DRUGS (1)
  1. MENS ROGAINE EXTRA STRENGTH [Suspect]
     Active Substance: MINOXIDIL
     Indication: ALOPECIA
     Dosage: 3 QUARTERS OF THE AMOUNT TWICE A DAY
     Route: 061
     Dates: start: 2019

REACTIONS (4)
  - Product use issue [Unknown]
  - Off label use [Unknown]
  - Dry skin [Recovering/Resolving]
  - Dandruff [Recovering/Resolving]

NARRATIVE: CASE EVENT DATE: 2019
